FAERS Safety Report 7536358-4 (Version None)
Quarter: 2011Q2

REPORT INFORMATION
  Report Type: 
  Country: None (occurrence: None)
  Receive Date: 20110524
  Receipt Date: 20110324
  Transmission Date: 20111010
  Serious: Yes (Hospitalization)
  Sender: FDA-Public Use
  Company Number: 030004

PATIENT
  Sex: Male

DRUGS (2)
  1. CIMZIA [Suspect]
     Indication: CROHN'S DISEASE
     Dosage: (SUBCUTANEOUS)
     Route: 058
     Dates: start: 20110126
  2. BUDESONIDE [Suspect]
     Indication: CROHN'S DISEASE
     Dosage: (3 MG, IN THE MORNING ORAL)
     Route: 048
     Dates: end: 20110306

REACTIONS (1)
  - CROHN'S DISEASE [None]
